FAERS Safety Report 6238059-1 (Version None)
Quarter: 2009Q2

REPORT INFORMATION
  Report Type: 
  Country: None (occurrence: None)
  Receive Date: 20090622
  Receipt Date: 20090618
  Transmission Date: 20091009
  Serious: Yes (Hospitalization)
  Sender: FDA-Public Use
  Company Number: US-BRISTOL-MYERS SQUIBB COMPANY-14670426

PATIENT
  Age: 69 Year
  Sex: Male
  Weight: 105 kg

DRUGS (14)
  1. CARBOPLATIN [Suspect]
     Indication: NON-SMALL CELL LUNG CANCER
     Dosage: INITIATED ON 16APR09
     Route: 042
     Dates: start: 20090507, end: 20090507
  2. PACLITAXEL [Suspect]
     Indication: NON-SMALL CELL LUNG CANCER
     Dosage: INITIATED ON 16APR09
     Route: 042
     Dates: start: 20090507, end: 20090507
  3. AXITINIB [Suspect]
     Indication: NON-SMALL CELL LUNG CANCER
     Dosage: INITIATED ON 16APR09
     Route: 048
     Dates: start: 20090513, end: 20090513
  4. DIFLUCAN [Concomitant]
     Indication: MUCOSAL INFLAMMATION
     Dates: start: 20090507
  5. LIPITOR [Concomitant]
     Indication: HYPERCHOLESTEROLAEMIA
     Dates: start: 19990101
  6. DOMEBORO [Concomitant]
     Indication: RASH
     Dates: start: 20090424
  7. SYNTHROID [Concomitant]
     Indication: HYPOTHYROIDISM
     Dates: start: 19990101
  8. VENLAFAXINE HCL [Concomitant]
     Indication: DEPRESSION
     Dates: start: 20090429
  9. PIOGLITAZONE HCL [Concomitant]
     Indication: DIABETES MELLITUS
     Dates: start: 19990101
  10. COMBIVENT [Concomitant]
     Dates: start: 20090414
  11. CETIRIZINE [Concomitant]
     Indication: RASH
     Dates: start: 20090420
  12. LORA TAB [Concomitant]
     Indication: PAIN
     Dosage: 1 DF= 5/500MG
     Dates: start: 20090414
  13. LISINOPRIL [Concomitant]
     Indication: HYPERTENSION
     Dates: start: 20090507
  14. INSULIN SLIDING SCALE [Concomitant]
     Indication: DIABETES MELLITUS
     Dates: start: 20090414

REACTIONS (6)
  - ATRIAL FIBRILLATION [None]
  - CEREBROVASCULAR ACCIDENT [None]
  - LEUKOPENIA [None]
  - MENTAL STATUS CHANGES [None]
  - STAPHYLOCOCCAL INFECTION [None]
  - THROMBOCYTOPENIA [None]
